FAERS Safety Report 19751815 (Version 1)
Quarter: 2021Q3

REPORT INFORMATION
  Report Type: Spontaneous
  Country: DE (occurrence: DE)
  Receive Date: 20210826
  Receipt Date: 20210826
  Transmission Date: 20211014
  Serious: Yes (Death, Other)
  Sender: FDA-Public Use
  Company Number: DE-MYLANLABS-2021M1055692

PATIENT
  Age: 81 Year
  Sex: Female

DRUGS (4)
  1. ATRA                               /00614702/ [Suspect]
     Active Substance: ATRACURIUM BESYLATE
     Indication: ACUTE PROMYELOCYTIC LEUKAEMIA
     Dosage: UNK
     Route: 065
  2. HYDROXYUREA. [Suspect]
     Active Substance: HYDROXYUREA
     Indication: PRODUCT USED FOR UNKNOWN INDICATION
     Dosage: UNK
     Route: 065
  3. DEXAMETHASONE. [Suspect]
     Active Substance: DEXAMETHASONE
     Indication: PRODUCT USED FOR UNKNOWN INDICATION
     Dosage: UNK
     Route: 065
  4. ARSENIC [Suspect]
     Active Substance: ARSENIC
     Indication: ACUTE PROMYELOCYTIC LEUKAEMIA
     Dosage: UNK
     Route: 065

REACTIONS (5)
  - Aspergillus infection [Unknown]
  - Duodenal ulcer haemorrhage [Unknown]
  - Herpes simplex [Unknown]
  - COVID-19 [Fatal]
  - Differentiation syndrome [Unknown]

NARRATIVE: CASE EVENT DATE: 2020
